FAERS Safety Report 19433317 (Version 1)
Quarter: 2021Q2

REPORT INFORMATION
  Report Type: Spontaneous
  Country: JP (occurrence: JP)
  Receive Date: 20210618
  Receipt Date: 20210618
  Transmission Date: 20210717
  Serious: Yes (Other)
  Sender: FDA-Public Use
  Company Number: NVSJ2021JP006612

PATIENT
  Sex: Female

DRUGS (1)
  1. AFINITOR [Suspect]
     Active Substance: EVEROLIMUS
     Indication: BREAST CANCER
     Dosage: UNK
     Route: 048

REACTIONS (19)
  - Cardiac failure [Unknown]
  - Hepatic mass [Unknown]
  - Metastases to liver [Unknown]
  - Metastases to lymph nodes [Unknown]
  - Cardiac dysfunction [Unknown]
  - Pleural effusion [Unknown]
  - Concomitant disease aggravated [Unknown]
  - Lymphadenopathy [Unknown]
  - Drug ineffective [Unknown]
  - Pericardial effusion [Unknown]
  - Cardiomegaly [Unknown]
  - Hepatic function abnormal [Unknown]
  - Interstitial lung disease [Recovering/Resolving]
  - Hepatic cyst [Unknown]
  - Nodule [Unknown]
  - Dyspnoea [Unknown]
  - Fatigue [Unknown]
  - Malignant neoplasm progression [Unknown]
  - Lung infiltration [Unknown]

NARRATIVE: CASE EVENT DATE: 20210412
